FAERS Safety Report 9468651 (Version 1)
Quarter: 2013Q3

REPORT INFORMATION
  Report Type: Spontaneous
  Country: GB (occurrence: None)
  Receive Date: 20130816
  Receipt Date: 20130816
  Transmission Date: 20140515
  Serious: Yes (Other)
  Sender: FDA-Public Use
  Company Number: SYM-2013-08942

PATIENT
  Age: 12 Year
  Sex: Female
  Weight: 46 kg

DRUGS (1)
  1. ELIDEL [Suspect]
     Dosage: 1 DOSAGE FORMS 1 IN 1 D TOPICAL
     Route: 061
     Dates: start: 20130420, end: 20130520

REACTIONS (4)
  - Alopecia [None]
  - Skin disorder [None]
  - Emotional distress [None]
  - Educational problem [None]
